FAERS Safety Report 10222755 (Version 1)
Quarter: 2014Q2

REPORT INFORMATION
  Report Type: Spontaneous
  Country: US (occurrence: US)
  Receive Date: 20140606
  Receipt Date: 20140606
  Transmission Date: 20141212
  Serious: Yes (Other)
  Sender: FDA-Public Use
  Company Number: US-GILEAD-2014-0104566

PATIENT
  Sex: Male

DRUGS (2)
  1. SOVALDI [Suspect]
     Indication: CHRONIC HEPATITIS C
     Dosage: 400 MG, UNK
     Route: 065
     Dates: start: 20140224
  2. SIMEPREVIR [Suspect]
     Indication: CHRONIC HEPATITIS C
     Dosage: 150 MG, QD
     Route: 048
     Dates: start: 20140224, end: 20140430

REACTIONS (4)
  - Photosensitivity reaction [Recovered/Resolved]
  - Erythema [Not Recovered/Not Resolved]
  - Peripheral swelling [Unknown]
  - Off label use [Unknown]
